FAERS Safety Report 5463092-7 (Version None)
Quarter: 2007Q3

REPORT INFORMATION
  Report Type: 
  Country: None (occurrence: None)
  Receive Date: 20070920
  Receipt Date: 20070912
  Transmission Date: 20080115
  Serious: Yes (Congenital Anomaly)
  Sender: FDA-Public Use
  Company Number: GB-AVENTIS-200718487GDDC

PATIENT
  Age: 24 Year
  Sex: Female

DRUGS (2)
  1. CLOMID [Suspect]
     Route: 048
  2. CLARITHROMYCIN [Concomitant]
     Dosage: DOSE: UNK
     Dates: start: 20070627

REACTIONS (4)
  - CONGENITAL ANOMALY [None]
  - CONJOINED TWINS [None]
  - CYSTIC LYMPHANGIOMA [None]
  - HYPOPLASTIC LEFT HEART SYNDROME [None]
